FAERS Safety Report 4737709-6 (Version None)
Quarter: 2005Q3

REPORT INFORMATION
  Report Type: 
  Country: None (occurrence: None)
  Receive Date: 20050809
  Receipt Date: 20050618
  Transmission Date: 20060218
  Serious: No
  Sender: FDA-Public Use
  Company Number: US-GLAXOSMITHKLINE-A0563363A

PATIENT
  Sex: Female

DRUGS (1)
  1. COMMIT [Suspect]
     Dates: start: 20050615

REACTIONS (2)
  - HEADACHE [None]
  - NECK PAIN [None]
